FAERS Safety Report 7363871-5 (Version None)
Quarter: 2011Q1

REPORT INFORMATION
  Report Type: 
  Country: None (occurrence: None)
  Receive Date: 20110321
  Receipt Date: 20110311
  Transmission Date: 20110831
  Serious: Yes (Hospitalization, Other)
  Sender: FDA-Public Use
  Company Number: US-PFIZER INC-2011044644

PATIENT
  Sex: Female

DRUGS (6)
  1. SYNTHROID [Concomitant]
     Dosage: 112 MCG
     Dates: start: 19810101
  2. NEURONTIN [Suspect]
     Dosage: 900 MG, 100 MG
     Dates: start: 20000101, end: 20030101
  3. NEURONTIN [Suspect]
     Dosage: 600 MG, UNK
     Dates: start: 19990101, end: 20000101
  4. NEURONTIN [Suspect]
     Indication: MOOD SWINGS
     Dosage: 600 MG, UNK
  5. NEURONTIN [Suspect]
     Indication: BIPOLAR DISORDER
     Dosage: 300 MG, UNK
     Dates: start: 19980101, end: 19990101
  6. NEURONTIN [Suspect]
     Dosage: 2400-2800 MG
     Dates: start: 19990101

REACTIONS (2)
  - SUICIDE ATTEMPT [None]
  - OSTEOPENIA [None]
